FAERS Safety Report 13264632 (Version 1)
Quarter: 2017Q1

REPORT INFORMATION
  Report Type: Spontaneous
  Country: GB (occurrence: GB)
  Receive Date: 20170223
  Receipt Date: 20170223
  Transmission Date: 20170428
  Serious: Yes (Other)
  Sender: FDA-Public Use
  Company Number: GB-009507513-1702GBR008170

PATIENT
  Age: 63 Year
  Sex: Male
  Weight: 82 kg

DRUGS (3)
  1. MIRTAZAPINE. [Suspect]
     Active Substance: MIRTAZAPINE
     Indication: ANXIETY
     Dosage: 30 MG, UNK
     Route: 048
     Dates: start: 201510, end: 201701
  2. SINEMET CR [Concomitant]
     Active Substance: CARBIDOPA\LEVODOPA
     Dosage: UNK
  3. BISACODYL. [Concomitant]
     Active Substance: BISACODYL

REACTIONS (4)
  - Nocturia [Recovering/Resolving]
  - Micturition disorder [Recovering/Resolving]
  - Mood swings [Recovering/Resolving]
  - Verbal abuse [Recovering/Resolving]

NARRATIVE: CASE EVENT DATE: 201605
